FAERS Safety Report 15665943 (Version 1)
Quarter: 2018Q4

REPORT INFORMATION
  Report Type: Spontaneous
  Country: PK (occurrence: PK)
  Receive Date: 20181128
  Receipt Date: 20181128
  Transmission Date: 20190205
  Serious: Yes (Other)
  Sender: FDA-Public Use
  Company Number: PK-GILEAD-2018-0375884

PATIENT
  Age: 29 Year
  Sex: Male

DRUGS (3)
  1. EFAVIRENZ. [Concomitant]
     Active Substance: EFAVIRENZ
  2. LAMIVUDINE. [Concomitant]
     Active Substance: LAMIVUDINE
  3. VIREAD [Suspect]
     Active Substance: TENOFOVIR DISOPROXIL FUMARATE
     Indication: HIV INFECTION
     Dosage: UNK
     Route: 065

REACTIONS (2)
  - Genotype drug resistance test positive [Unknown]
  - Drug ineffective [Unknown]
